FAERS Safety Report 9249325 (Version 1)
Quarter: 2013Q2

REPORT INFORMATION
  Report Type: Other
  Country: IT (occurrence: IT)
  Receive Date: 20130423
  Receipt Date: 20130423
  Transmission Date: 20140414
  Serious: Yes (Life-Threatening)
  Sender: FDA-Public Use
  Company Number: IT-ACTAVIS-2013-06840

PATIENT
  Age: 45 Year
  Sex: Female

DRUGS (1)
  1. PACLITAXEL (UNKNOWN) [Suspect]
     Indication: BREAST CANCER
     Dosage: 80 MG/ SQ METER
     Route: 042
     Dates: start: 20130218

REACTIONS (2)
  - Back pain [Recovering/Resolving]
  - Hyperhidrosis [Recovering/Resolving]
